FAERS Safety Report 7792425-1 (Version None)
Quarter: 2011Q3

REPORT INFORMATION
  Report Type: 
  Country: None (occurrence: None)
  Receive Date: 20110930
  Receipt Date: 20110930
  Transmission Date: 20111222
  Serious: Yes (Life-Threatening)
  Sender: FDA-Public Use
  Company Number: None

PATIENT
  Age: 64 Year
  Sex: Female
  Weight: 68.0396 kg

DRUGS (1)
  1. COREG [Suspect]
     Indication: VIRAL CARDIOMYOPATHY
     Dosage: 1/2 OF 6.25 1 XDAY
     Dates: start: 20070409, end: 20070411

REACTIONS (1)
  - DYSPNOEA [None]
